FAERS Safety Report 17994437 (Version 1)
Quarter: 2020Q3

REPORT INFORMATION
  Report Type: Spontaneous
  Country: US (occurrence: US)
  Receive Date: 20200708
  Receipt Date: 20200708
  Transmission Date: 20201103
  Serious: No
  Sender: FDA-Public Use
  Company Number: US-TEVA-2020-US-1797561

PATIENT
  Sex: Female

DRUGS (1)
  1. COPAXONE [Suspect]
     Active Substance: GLATIRAMER ACETATE
     Dosage: FORM STRENGTH: UNKNOWN

REACTIONS (8)
  - Flushing [Recovered/Resolved]
  - Dizziness [Recovered/Resolved]
  - Injection site rash [Recovered/Resolved]
  - Feeling hot [Recovered/Resolved]
  - Injection site pruritus [Recovered/Resolved]
  - Anxiety [Recovered/Resolved]
  - Chills [Recovered/Resolved]
  - Injection site mass [Recovered/Resolved]
